FAERS Safety Report 8241919-3 (Version None)
Quarter: 2012Q1

REPORT INFORMATION
  Report Type: 
  Country: None (occurrence: None)
  Receive Date: 20120329
  Receipt Date: 20120320
  Transmission Date: 20120608
  Serious: Yes (Hospitalization)
  Sender: FDA-Public Use
  Company Number: GB-BRISTOL-MYERS SQUIBB COMPANY-16442717

PATIENT
  Age: 66 Year
  Sex: Male
  Weight: 83 kg

DRUGS (13)
  1. RAMIPRIL [Concomitant]
     Route: 048
     Dates: start: 20100921
  2. ACETAMINOPHEN [Concomitant]
     Dates: start: 20110810
  3. ETOPOSIDE [Suspect]
     Indication: SMALL CELL LUNG CANCER STAGE UNSPECIFIED
     Dosage: 06JAN12,LAST DOSE ON 24FEB12,NO OF CYCLES:5
     Dates: start: 20111124, end: 20120224
  4. NYSTATIN [Concomitant]
     Dates: start: 20120228
  5. IPILIMUMAB [Suspect]
     Indication: SMALL CELL LUNG CANCER STAGE UNSPECIFIED
     Dosage: LAST DOSE ON 27JAN12,NO OF CYCLES:5
     Dates: start: 20120105, end: 20120127
  6. CARBOPLATIN [Suspect]
     Indication: SMALL CELL LUNG CANCER STAGE UNSPECIFIED
     Dosage: 06JAN12,LAST DOSE ON 24FEB12 650MG,NO OF CYCLES:5
     Dates: start: 20111124, end: 20120224
  7. SIMVASTATIN [Concomitant]
     Route: 048
     Dates: start: 20090910
  8. AMLODIPINE [Concomitant]
     Dates: start: 20091211
  9. LORAZEPAM [Concomitant]
     Dates: start: 20120220
  10. PREDNISOLONE [Concomitant]
     Dosage: DOSE:10MG, DC'D 20MAR12
     Dates: start: 20120223, end: 20120320
  11. OMEPRAZOLE [Concomitant]
     Route: 048
     Dates: start: 20091026
  12. BISOPROLOL FUMARATE [Concomitant]
     Dates: start: 20090810
  13. ASPIRIN [Concomitant]
     Dates: start: 20090710

REACTIONS (5)
  - ANAEMIA [None]
  - ABDOMINAL PAIN [None]
  - DYSPNOEA [None]
  - DIARRHOEA [None]
  - LUNG INFECTION [None]
